FAERS Safety Report 9216008 (Version 1)
Quarter: 2013Q2

REPORT INFORMATION
  Report Type: Spontaneous
  Country: US (occurrence: US)
  Receive Date: 20130408
  Receipt Date: 20130408
  Transmission Date: 20140414
  Serious: Yes (Death, Other)
  Sender: FDA-Public Use
  Company Number: US-JNJFOC-20130402605

PATIENT
  Sex: 0

DRUGS (9)
  1. DOXORUBICIN [Suspect]
     Indication: HODGKIN^S DISEASE
     Route: 042
  2. BLEOMYCIN [Suspect]
     Indication: HODGKIN^S DISEASE
     Route: 065
  3. VINBLASTIN [Suspect]
     Indication: HODGKIN^S DISEASE
     Route: 065
  4. DACARBAZINE [Suspect]
     Indication: HODGKIN^S DISEASE
     Route: 065
  5. PROCARBAZINE [Suspect]
     Indication: HODGKIN^S DISEASE
     Route: 065
  6. MECHLORETHAMINE [Suspect]
     Indication: HODGKIN^S DISEASE
     Route: 065
  7. VINCRISTINE [Suspect]
     Indication: HODGKIN^S DISEASE
     Route: 065
  8. PREDNISONE [Suspect]
     Indication: HODGKIN^S DISEASE
     Route: 065
  9. THERAPEUTIC RADIOPHARMACEUTICALS [Suspect]
     Indication: HODGKIN^S DISEASE
     Dosage: 15 GY
     Route: 065

REACTIONS (2)
  - Acute myeloid leukaemia [Fatal]
  - Myelodysplastic syndrome [Fatal]
